FAERS Safety Report 5399370-X (Version None)
Quarter: 2007Q3

REPORT INFORMATION
  Report Type: 
  Country: None (occurrence: None)
  Receive Date: 20070727
  Receipt Date: 20070718
  Transmission Date: 20080115
  Serious: Yes (Hospitalization)
  Sender: FDA-Public Use
  Company Number: JP-ASTRAZENECA-2007AP03880

PATIENT
  Age: 19960 Day
  Sex: Female

DRUGS (9)
  1. ARIMIDEX [Suspect]
     Indication: BREAST CANCER
     Route: 048
     Dates: start: 20031027, end: 20070529
  2. TEGRETOL [Suspect]
     Route: 048
     Dates: start: 20051201
  3. NORVASC [Concomitant]
     Route: 048
  4. ESIDRI [Concomitant]
     Route: 048
  5. WARFARIN SODIUM [Concomitant]
     Route: 048
  6. LASIX [Concomitant]
     Dates: start: 20070501
  7. FERROMIA [Concomitant]
     Route: 048
     Dates: start: 20070501
  8. DEPAKENE [Concomitant]
     Route: 048
     Dates: start: 19990401
  9. LANSOPRAZOLE [Concomitant]
     Route: 048
     Dates: start: 20051201

REACTIONS (2)
  - ANAEMIA [None]
  - PULMONARY HYPERTENSION [None]
